FAERS Safety Report 21997143 (Version 7)
Quarter: 2023Q2

REPORT INFORMATION
  Report Type: Spontaneous
  Country: GB (occurrence: GB)
  Receive Date: 20230216
  Receipt Date: 20230531
  Transmission Date: 20230722
  Serious: Yes (Other)
  Sender: FDA-Public Use
  Company Number: None

PATIENT
  Age: 25 Year
  Sex: Female

DRUGS (23)
  1. PREDNISOLONE [Suspect]
     Active Substance: PREDNISOLONE
     Indication: Psoriatic arthropathy
     Dosage: UNK
     Route: 065
     Dates: start: 201903
  2. PREDNISOLONE [Suspect]
     Active Substance: PREDNISOLONE
     Indication: Peripheral spondyloarthritis
     Dosage: SHORT COURSE
     Route: 065
     Dates: start: 201903
  3. METHOTREXATE [Suspect]
     Active Substance: METHOTREXATE
     Indication: Psoriatic arthropathy
     Dosage: (SOLUTION FOR INJECTION), RESTARTED
     Route: 058
     Dates: start: 201809, end: 202008
  4. METHOTREXATE [Suspect]
     Active Substance: METHOTREXATE
     Dosage: (PREDNISOLONE AND SC METHOTREXATE) (STOP DATE: MAR 2019))
     Route: 058
     Dates: start: 201809
  5. METHOTREXATE [Suspect]
     Active Substance: METHOTREXATE
     Dosage: (SC METHOTREXATE WITH LEFLUNOMIDE)
     Route: 058
     Dates: start: 202001, end: 202008
  6. METHOTREXATE [Suspect]
     Active Substance: METHOTREXATE
     Dosage: (RITUXIMAB AND METHOTREXATE)
     Route: 065
  7. METHOTREXATE [Suspect]
     Active Substance: METHOTREXATE
     Dosage: RESTARTED (SOLUTION FOR INJECTION)
     Route: 058
     Dates: start: 202008, end: 202008
  8. SULFASALAZINE [Suspect]
     Active Substance: SULFASALAZINE
     Indication: Psoriatic arthropathy
     Dosage: UNK
     Route: 065
     Dates: start: 201809
  9. LEFLUNOMIDE [Suspect]
     Active Substance: LEFLUNOMIDE
     Indication: Psoriatic arthropathy
     Dosage: EVERY 6 MONTHS
     Route: 065
  10. LEFLUNOMIDE [Suspect]
     Active Substance: LEFLUNOMIDE
     Dosage: RESTARTED
     Route: 065
     Dates: start: 202001
  11. ETANERCEPT [Suspect]
     Active Substance: ETANERCEPT
     Indication: Psoriatic arthropathy
     Dosage: UNK
     Route: 065
  12. TOCILIZUMAB [Suspect]
     Active Substance: TOCILIZUMAB
     Indication: Psoriatic arthropathy
     Dosage: UNK
     Route: 058
  13. TOCILIZUMAB [Suspect]
     Active Substance: TOCILIZUMAB
     Dosage: UNK (INFUSION)
     Route: 042
  14. TOFACITINIB [Suspect]
     Active Substance: TOFACITINIB
     Indication: Psoriatic arthropathy
     Dosage: UNK
     Route: 065
     Dates: start: 202001, end: 202008
  15. TOFACITINIB [Suspect]
     Active Substance: TOFACITINIB
     Dosage: UNK
     Route: 065
  16. TOFACITINIB [Suspect]
     Active Substance: TOFACITINIB
     Dosage: UNK
     Route: 065
     Dates: start: 202008
  17. COSENTYX [Suspect]
     Active Substance: SECUKINUMAB
     Indication: Psoriatic arthropathy
     Dosage: UNK
     Route: 065
     Dates: start: 201903
  18. RITUXIMAB [Suspect]
     Active Substance: RITUXIMAB
     Indication: Psoriatic arthropathy
     Dosage: UNK
     Route: 065
  19. ADALIMUMAB [Suspect]
     Active Substance: ADALIMUMAB
     Indication: Psoriatic arthropathy
     Dosage: BIOSIMILAR
     Route: 058
  20. ADALIMUMAB [Suspect]
     Active Substance: ADALIMUMAB
     Dosage: UNK
     Route: 065
  21. ENBREL [Suspect]
     Active Substance: ETANERCEPT
     Indication: Psoriatic arthropathy
     Dosage: UNK
     Route: 065
  22. ENBREL [Suspect]
     Active Substance: ETANERCEPT
     Indication: Peripheral spondyloarthritis
     Dosage: UNK
     Route: 065
  23. SECUKINUMAB [Suspect]
     Active Substance: SECUKINUMAB
     Indication: Psoriatic arthropathy
     Dosage: UNK
     Route: 065
     Dates: start: 201903

REACTIONS (8)
  - Cervical dysplasia [Unknown]
  - Unevaluable event [Unknown]
  - Papilloma viral infection [Unknown]
  - Drug ineffective [Unknown]
  - Multiple-drug resistance [Unknown]
  - Therapy partial responder [Unknown]
  - Adverse drug reaction [Unknown]
  - Off label use [Unknown]
